FAERS Safety Report 5746087-5 (Version None)
Quarter: 2008Q2

REPORT INFORMATION
  Report Type: 
  Country: None (occurrence: None)
  Receive Date: 20080522
  Receipt Date: 20080404
  Transmission Date: 20081010
  Serious: No
  Sender: FDA-Public Use
  Company Number: A0688259A

PATIENT
  Age: 76 Year
  Sex: Female

DRUGS (2)
  1. BACTROBAN [Suspect]
     Indication: SKIN INFECTION
     Dosage: 1APP TWICE PER DAY
     Route: 061
     Dates: start: 20070920, end: 20070901
  2. TRIAMCINOLONE [Concomitant]

REACTIONS (9)
  - ACNE [None]
  - DISCOMFORT [None]
  - HYPERSENSITIVITY [None]
  - INSOMNIA [None]
  - LOCAL SWELLING [None]
  - PRURITUS GENERALISED [None]
  - RASH [None]
  - URTICARIA [None]
  - WOUND SECRETION [None]
